FAERS Safety Report 23442377 (Version 1)
Quarter: 2024Q1

REPORT INFORMATION
  Report Type: Report from Study
  Country: BG (occurrence: BG)
  Receive Date: 20240125
  Receipt Date: 20240125
  Transmission Date: 20240410
  Serious: Yes (Other)
  Sender: FDA-Public Use
  Company Number: BG-SUN PHARMACEUTICAL INDUSTRIES LTD-2024R1-428557

PATIENT
  Age: 13 Year
  Sex: Female

DRUGS (3)
  1. METFORMIN [Suspect]
     Active Substance: METFORMIN HYDROCHLORIDE
     Indication: Diabetes mellitus
     Dosage: UNK (2550MG)
     Route: 065
  2. INSULIN HUMAN [Suspect]
     Active Substance: INSULIN HUMAN
     Indication: Diabetes mellitus
     Dosage: UNK (0.88U/KG/DAY)
     Route: 065
  3. METRELEPTIN [Concomitant]
     Active Substance: METRELEPTIN
     Indication: Diabetes mellitus
     Dosage: UNK (5,8MG)
     Route: 065

REACTIONS (6)
  - Metabolic syndrome [Recovering/Resolving]
  - Nephropathy [Recovering/Resolving]
  - Neuropathy peripheral [Recovering/Resolving]
  - Hepatic steatosis [Recovering/Resolving]
  - Bone cyst [Recovering/Resolving]
  - Amenorrhoea [Recovering/Resolving]
